FAERS Safety Report 9149523 (Version 1)
Quarter: 2013Q1

REPORT INFORMATION
  Report Type: Spontaneous
  Country: US (occurrence: US)
  Receive Date: 20130308
  Receipt Date: 20130308
  Transmission Date: 20140127
  Serious: No
  Sender: FDA-Public Use
  Company Number: US-ENDO PHARMACEUTICALS INC.-OPCR20120040

PATIENT
  Sex: Female

DRUGS (3)
  1. OPANA ER 30MG [Suspect]
     Indication: BACK PAIN
     Route: 065
     Dates: start: 20120323
  2. OPANA ER 30MG [Suspect]
     Indication: ARTHRALGIA
  3. OPANA ER [Concomitant]

REACTIONS (5)
  - Blood pressure abnormal [Not Recovered/Not Resolved]
  - Formication [Not Recovered/Not Resolved]
  - Feeling abnormal [Not Recovered/Not Resolved]
  - Vomiting [Not Recovered/Not Resolved]
  - Drug ineffective [Not Recovered/Not Resolved]
